FAERS Safety Report 10623561 (Version 3)
Quarter: 2018Q4

REPORT INFORMATION
  Report Type: Report from Study
  Country: US (occurrence: US)
  Receive Date: 20141203
  Receipt Date: 20181218
  Transmission Date: 20190204
  Serious: Yes (Other)
  Sender: FDA-Public Use
  Company Number: US-TEVA-526336USA

PATIENT
  Age: 23 Year
  Sex: Female

DRUGS (1)
  1. CLARAVIS [Suspect]
     Active Substance: ISOTRETINOIN
     Dosage: 90 MILLIGRAM DAILY; 1 TAB IN AM, 2 IN PM
     Route: 048
     Dates: start: 20141022, end: 20141113

REACTIONS (2)
  - Unintended pregnancy [Unknown]
  - Maternal exposure during pregnancy [Unknown]

NARRATIVE: CASE EVENT DATE: 20141113
